FAERS Safety Report 9276249 (Version 1)
Quarter: 2013Q2

REPORT INFORMATION
  Report Type: Spontaneous
  Country: US (occurrence: None)
  Receive Date: 20130502
  Receipt Date: 20130502
  Transmission Date: 20140414
  Serious: Yes (Hospitalization)
  Sender: FDA-Public Use
  Company Number: None

PATIENT
  Age: 66 Year
  Sex: Male
  Weight: 85.5 kg

DRUGS (1)
  1. CEFAZOLIN [Suspect]
     Route: 042
     Dates: start: 20120127, end: 20120127

REACTIONS (3)
  - Hypotension [None]
  - Bradycardia [None]
  - Anaphylactic reaction [None]
